FAERS Safety Report 19094259 (Version 1)
Quarter: 2021Q2

REPORT INFORMATION
  Report Type: Other
  Country: IE (occurrence: IE)
  Receive Date: 20210406
  Receipt Date: 20210406
  Transmission Date: 20210717
  Serious: Yes (Hospitalization)
  Sender: FDA-Public Use
  Company Number: IE-CELLTRION INC.-2021IE004276

PATIENT

DRUGS (17)
  1. ATROVENT [Concomitant]
     Active Substance: IPRATROPIUM BROMIDE
     Dosage: ATROVENT UNIT DOSE VIALS 500 MCG/2ML SOLUTION TWICE DAILY/ PER 12 HOURS
  2. BURINEX [Concomitant]
     Active Substance: BUMETANIDE
     Dosage: 1 MG PER 24 HOURS
  3. VENTOLIN [Concomitant]
     Active Substance: ALBUTEROL SULFATE
     Dosage: 5 MG ONE 4 TIMES A DAY/ PER 6 HOURS
  4. SPIRIVA RESPIMAT [Concomitant]
     Active Substance: TIOTROPIUM BROMIDE
     Dosage: 2.5MG DOSE INHALER ONE TO BE TAKEN DAILY/ PER 24 HOURS
  5. INFLIXIMAB (UNKNOWN) [Suspect]
     Active Substance: INFLIXIMAB
     Indication: PSORIATIC ARTHROPATHY
     Dosage: 607MG. 23 ML INFUSED
     Route: 042
     Dates: start: 20201203
  6. ZITHROMAX [Concomitant]
     Active Substance: AZITHROMYCIN DIHYDRATE
     Dosage: 250 MG CAPSULES ALTERNATE DAYS/ PER 48 HOURS
  7. AMLODIPINE [Concomitant]
     Active Substance: AMLODIPINE BESYLATE
     Dosage: 5 MG TABLETS ONE DAILY/ PER 24 HOURS
  8. PARACETAMOL [Concomitant]
     Active Substance: ACETAMINOPHEN
     Dosage: 500 MG TWO 4 TIMES DAILY AS REQUIRED
  9. OMESAR [OLMESARTAN MEDOXOMIL] [Concomitant]
     Dosage: 10 MG PER 24 HOURS
  10. SINGULAIR [Concomitant]
     Active Substance: MONTELUKAST SODIUM
     Dosage: 10 MG PER 24 HOURS
  11. METHOTREXATE. [Concomitant]
     Active Substance: METHOTREXATE
     Dosage: 6 (=15 MG) PER WEEK ON SATURDAY
  12. RELVAR ELLIPTA [FLUTICASONE FUROATE;VILANTEROL TRIFENATATE] [Concomitant]
     Active Substance: FLUTICASONE FUROATE\VILANTEROL TRIFENATATE
     Dosage: 200/ 25 MCG DAILY/ PER 24 HOURS
  13. TRAVATAN [Concomitant]
     Active Substance: TRAVOPROST
     Dosage: 2.5ML 40 MCG/ M EYE DROPS 1 EACH EYE AT NIGHT/ PER 24 HOURS
  14. ATORVAS [Concomitant]
     Active Substance: ATORVASTATIN CALCIUM
     Dosage: 10 MG PER 24 HOUR
  15. LEVOTHYROXINE TEVA [Concomitant]
     Active Substance: LEVOTHYROXINE
     Dosage: 100 MCG MON?FRI, 50 MCG SAT?SUN
  16. PROTIUM [PANTOPRAZOLE SODIUM SESQUIHYDRATE] [Concomitant]
     Dosage: 40 MG PER 24 HOURS
  17. FOLIC ACID. [Concomitant]
     Active Substance: FOLIC ACID
     Dosage: TWO ON SUNDAY

REACTIONS (2)
  - Rash pruritic [Recovered/Resolved]
  - Dyspnoea [Recovered/Resolved]

NARRATIVE: CASE EVENT DATE: 20201203
